FAERS Safety Report 7382393-9 (Version None)
Quarter: 2011Q1

REPORT INFORMATION
  Report Type: 
  Country: None (occurrence: None)
  Receive Date: 20110329
  Receipt Date: 20110224
  Transmission Date: 20110831
  Serious: No
  Sender: FDA-Public Use
  Company Number: US-BAYER-2011-018461

PATIENT
  Sex: Male
  Weight: 69 kg

DRUGS (5)
  1. LISINOPRIL [Concomitant]
     Dosage: 1 DF, QD
     Route: 048
  2. ALEVE (CAPLET) [Suspect]
     Indication: HEADACHE
     Dosage: 1 DF, ONCE
     Route: 048
     Dates: start: 20110223
  3. SIMVASTATIN [Concomitant]
     Dosage: 1 DF, QD
     Route: 048
  4. ASPIRIN [Concomitant]
     Dosage: 1 DF, QD
     Route: 048
  5. OMEPRAZOLE [Concomitant]
     Dosage: 1 DF, QD
     Route: 048

REACTIONS (1)
  - DRUG INEFFECTIVE [None]
